FAERS Safety Report 26043452 (Version 2)
Quarter: 2025Q4

REPORT INFORMATION
  Report Type: Report from Study
  Country: US (occurrence: US)
  Receive Date: 20251113
  Receipt Date: 20251124
  Transmission Date: 20260117
  Serious: Yes (Death, Other)
  Sender: AMNEAL
  Company Number: US-AMNEAL PHARMACEUTICALS-2025-AMRX-04319

PATIENT
  Sex: Female

DRUGS (1)
  1. FYLNETRA [Suspect]
     Active Substance: PEGFILGRASTIM-PBBK
     Indication: Product used for unknown indication
     Dosage: 6 MG EVERY 21 DAYS
     Route: 058

REACTIONS (1)
  - Neuroendocrine carcinoma [Fatal]
